FAERS Safety Report 5177383-0 (Version None)
Quarter: 2006Q4

REPORT INFORMATION
  Report Type: 
  Country: None (occurrence: None)
  Receive Date: 20061207
  Receipt Date: 20061130
  Transmission Date: 20070319
  Serious: Yes (Hospitalization, Congenital Anomaly)
  Sender: FDA-Public Use
  Company Number: 2006148101

PATIENT
  Sex: Male

DRUGS (5)
  1. XANAX [Suspect]
  2. NOCTRAN 10 (ACEPROMAZINE, ACEPROMETAZINE, CLORAZEPATE DIPOTASSIUM) [Suspect]
  3. CITALOPRAM HYDROBROMIDE [Suspect]
  4. EFFEXOR [Suspect]
  5. VALPROATE SODIUM [Suspect]

REACTIONS (4)
  - ANORECTAL DISORDER [None]
  - APGAR SCORE LOW [None]
  - DRUG EXPOSURE DURING PREGNANCY [None]
  - GASTROINTESTINAL MALFORMATION [None]
